FAERS Safety Report 16137821 (Version 1)
Quarter: 2019Q1

REPORT INFORMATION
  Report Type: Spontaneous
  Country: FR (occurrence: FR)
  Receive Date: 20190330
  Receipt Date: 20190330
  Transmission Date: 20190418
  Serious: Yes (Hospitalization)
  Sender: FDA-Public Use
  Company Number: FR-AUROBINDO-AUR-APL-2019-016816

PATIENT

DRUGS (15)
  1. AZITHROMYCIN ANHYDROUS. [Concomitant]
     Active Substance: AZITHROMYCIN ANHYDROUS
     Indication: RESPIRATORY TRACT INFECTION
     Dosage: 250 MILLIGRAM, QD
     Route: 048
  2. EUROBIOL [Concomitant]
     Indication: PANCREATIC FAILURE
     Dosage: 10 GRAM, QD
     Route: 048
  3. LINEZOLID. [Suspect]
     Active Substance: LINEZOLID
     Indication: PNEUMONIA
     Dosage: 600 MILLIGRAM, BID
     Dates: start: 20190130, end: 20190213
  4. CEFTOLOZANE SULFATE;TAZOBACTAM SODIUM [Suspect]
     Active Substance: CEFTOLOZANE SULFATE\TAZOBACTAM SODIUM
     Indication: PNEUMONIA
     Dosage: CEFTOLOZANE: 2 G/TAZOBACTAM: 1G, 3 TIMES EVERY 24 HOURS( TID)
     Route: 042
     Dates: start: 20190131, end: 20190203
  5. VFEND [Concomitant]
     Active Substance: VORICONAZOLE
     Indication: RESPIRATORY TRACT INFECTION
     Dosage: 10 MILLIGRAM, BID
     Route: 048
  6. CORTANCYL [Concomitant]
     Active Substance: PREDNISONE
     Indication: INFLAMMATION
     Dosage: 5 MILLIGRAM, QD
     Route: 048
  7. NOVORAPID [Concomitant]
     Active Substance: INSULIN ASPART
     Indication: DIABETES MELLITUS
     Dosage: 8 X 3/DAY
     Route: 058
  8. PULMOZYME [Concomitant]
     Active Substance: DORNASE ALFA
     Indication: LOWER RESPIRATORY TRACT CONGESTION
     Dosage: 2500 IU, QD
  9. SERETIDE [Concomitant]
     Active Substance: FLUTICASONE PROPIONATE\SALMETEROL XINAFOATE
     Indication: LOWER RESPIRATORY TRACT CONGESTION
     Dosage: 2 PUFFS, BID
  10. ORKAMBI [Concomitant]
     Active Substance: IVACAFTOR\LUMACAFTOR
     Indication: CYSTIC FIBROSIS
     Dosage: 400 MILLIGRAM, BID
     Route: 048
  11. LEVEMIR [Concomitant]
     Active Substance: INSULIN DETEMIR
     Indication: DIABETES MELLITUS
     Dosage: 5 INTERNATIONAL UNIT, QD
     Route: 058
  12. SPIRIVA [Concomitant]
     Active Substance: TIOTROPIUM BROMIDE MONOHYDRATE
     Indication: LOWER RESPIRATORY TRACT CONGESTION
     Dosage: 1 CAPSULE, QD
  13. URSOLVAN [Concomitant]
     Active Substance: URSODIOL
     Indication: CHOLESTASIS
     Dosage: 3 TABLETS, BID
     Route: 048
  14. FUMAFER [Concomitant]
     Active Substance: FERROUS FUMARATE
     Indication: ROUTINE HEALTH MAINTENANCE
     Dosage: 1 TABLET, QD
     Route: 048
  15. COLISTIN [Concomitant]
     Active Substance: COLISTIN
     Indication: RESPIRATORY TRACT INFECTION
     Dosage: 2 MUI X 2/DAY

REACTIONS (4)
  - Treatment failure [Recovering/Resolving]
  - Off label use [Unknown]
  - Overdose [Unknown]
  - Pyrexia [Recovering/Resolving]

NARRATIVE: CASE EVENT DATE: 20190131
